FAERS Safety Report 17394373 (Version 1)
Quarter: 2020Q1

REPORT INFORMATION
  Report Type: Spontaneous
  Country: DE (occurrence: DE)
  Receive Date: 20200210
  Receipt Date: 20200210
  Transmission Date: 20200409
  Serious: Yes (Other)
  Sender: FDA-Public Use
  Company Number: DE-TEVA-2020-DE-1179018

PATIENT
  Age: 69 Year
  Sex: Male

DRUGS (7)
  1. RIBAVIRIN. [Suspect]
     Active Substance: RIBAVIRIN
     Route: 065
  2. DOXORUBICIN [Concomitant]
     Active Substance: DOXORUBICIN
     Indication: NON-HODGKIN^S LYMPHOMA
     Dosage: R-CHOP REGIMEN
     Route: 065
     Dates: start: 2008
  3. RIBAVIRIN. [Suspect]
     Active Substance: RIBAVIRIN
     Indication: HEPATITIS E
     Dosage: WEIGHT-BASED; FOR THREE MONTHS. LATER, RE-STARTED AT THE SAME DOSAGE FOR 4 ADDITIONAL MONTHS WITH...
     Route: 065
  4. PREDNISOLONE. [Suspect]
     Active Substance: PREDNISOLONE
     Indication: NON-HODGKIN^S LYMPHOMA
     Dosage: R-CHOP REGIMEN
     Route: 065
     Dates: start: 2008
  5. RITUXIMAB. [Suspect]
     Active Substance: RITUXIMAB
     Indication: NON-HODGKIN^S LYMPHOMA
     Dosage: R-CHOP REGIMEN FOLLOWED BY MONOTHERAPY WITH RITUXIMAB
     Route: 065
     Dates: start: 2008
  6. VINCRISTINE [Concomitant]
     Active Substance: VINCRISTINE
     Indication: NON-HODGKIN^S LYMPHOMA
     Dosage: R-CHOP REGIMEN
     Route: 065
     Dates: start: 2008
  7. CYCLOPHOSPHAMIDE. [Concomitant]
     Active Substance: CYCLOPHOSPHAMIDE
     Indication: NON-HODGKIN^S LYMPHOMA
     Dosage: R-CHOP REGIMEN
     Route: 065
     Dates: start: 2008

REACTIONS (2)
  - Drug resistance [Unknown]
  - Hepatitis E [Not Recovered/Not Resolved]
